FAERS Safety Report 7768346-7 (Version None)
Quarter: 2011Q3

REPORT INFORMATION
  Report Type: 
  Country: None (occurrence: None)
  Receive Date: 20110922
  Receipt Date: 20110630
  Transmission Date: 20111222
  Serious: No
  Sender: FDA-Public Use
  Company Number: US-ASTRAZENECA-2011SE39323

PATIENT
  Age: 25 Year
  Sex: Male

DRUGS (1)
  1. SEROQUEL XR [Suspect]
     Indication: BIPOLAR DISORDER
     Route: 048
     Dates: start: 20110501, end: 20110601

REACTIONS (4)
  - DRUG DOSE OMISSION [None]
  - AGITATION [None]
  - MENTAL IMPAIRMENT [None]
  - ANGER [None]
